FAERS Safety Report 9009575 (Version 1)
Quarter: 2013Q1

REPORT INFORMATION
  Report Type: Spontaneous
  Country: NL (occurrence: NL)
  Receive Date: 20130110
  Receipt Date: 20130110
  Transmission Date: 20140127
  Serious: Yes (Hospitalization)
  Sender: FDA-Public Use
  Company Number: NL-PFIZER INC-2013008987

PATIENT
  Age: 43 Year
  Sex: Female

DRUGS (3)
  1. PANTOPRAZOLE [Suspect]
     Indication: HELICOBACTER INFECTION
     Dosage: 1 DF, 2X/DAY (3 TABLETS)
     Route: 048
     Dates: start: 201211, end: 201211
  2. CLARITHROMYCIN [Suspect]
     Indication: HELICOBACTER INFECTION
     Dosage: 1 DF, 2X/DAY (3 TABLETS)
     Route: 048
     Dates: start: 201211, end: 201211
  3. AMOXICILLIN [Suspect]
     Indication: HELICOBACTER INFECTION
     Dosage: 1 DF, 2X/DAY (3 TABLETS)
     Route: 048
     Dates: start: 201211, end: 201211

REACTIONS (1)
  - Stomatitis [Recovering/Resolving]
